FAERS Safety Report 21405567 (Version 1)
Quarter: 2022Q4

REPORT INFORMATION
  Report Type: Other
  Country: DK (occurrence: DK)
  Receive Date: 20221004
  Receipt Date: 20221004
  Transmission Date: 20230113
  Serious: Yes (Disabling, Other)
  Sender: FDA-Public Use
  Company Number: DK-CELLTRION INC.-2022DK015841

PATIENT

DRUGS (1)
  1. INFLIXIMAB [Suspect]
     Active Substance: INFLIXIMAB
     Indication: Crohn^s disease
     Dosage: DOSAGE: UNKNOWN DOSE EVERY 8 WEEKS, INTERVAL INCREASED TO 6 WEEKS ON 31OCT2018. STRENGTH: 100 MG
     Dates: start: 2015, end: 20181228

REACTIONS (9)
  - Sensory disturbance [Not Recovered/Not Resolved]
  - Axonal and demyelinating polyneuropathy [Not Recovered/Not Resolved]
  - Peroneal nerve palsy [Not Recovered/Not Resolved]
  - Fine motor skill dysfunction [Not Recovered/Not Resolved]
  - Radial nerve palsy [Not Recovered/Not Resolved]
  - Balance disorder [Not Recovered/Not Resolved]
  - Arthralgia [Unknown]
  - Muscular weakness [Not Recovered/Not Resolved]
  - Gait disturbance [Not Recovered/Not Resolved]

NARRATIVE: CASE EVENT DATE: 20170501
